FAERS Safety Report 11445539 (Version 1)
Quarter: 2015Q3

REPORT INFORMATION
  Report Type: Spontaneous
  Country: FR (occurrence: FR)
  Receive Date: 20150902
  Receipt Date: 20150902
  Transmission Date: 20151125
  Serious: Yes (Life-Threatening, Hospitalization)
  Sender: FDA-Public Use
  Company Number: FR-PFIZER INC-2015287724

PATIENT
  Age: 22 Year
  Sex: Female

DRUGS (4)
  1. METHADONE AP HP [Suspect]
     Active Substance: METHADONE HYDROCHLORIDE
     Dosage: 40 MG, SINGLE
     Route: 048
     Dates: start: 20150730, end: 20150730
  2. LAMALINE [Suspect]
     Active Substance: ACETAMINOPHEN\CAFFEINE\OPIUM
     Dosage: 3 DF, SINGLE
     Route: 048
     Dates: start: 20150730, end: 20150730
  3. EFFEXOR [Suspect]
     Active Substance: VENLAFAXINE HYDROCHLORIDE
     Dosage: 1 DF, SINGLE
     Route: 048
     Dates: start: 20150730, end: 20150730
  4. BROMAZEPAM [Suspect]
     Active Substance: BROMAZEPAM
     Dosage: 7 DF, SINGLE
     Route: 048
     Dates: start: 20150730, end: 20150730

REACTIONS (3)
  - Cardio-respiratory arrest [Recovered/Resolved]
  - Poisoning deliberate [Recovered/Resolved]
  - Respiratory distress [Recovered/Resolved]

NARRATIVE: CASE EVENT DATE: 20150730
